FAERS Safety Report 10203409 (Version 2)
Quarter: 2014Q2

REPORT INFORMATION
  Report Type: Spontaneous
  Country: CN (occurrence: CN)
  Receive Date: 20140529
  Receipt Date: 20140620
  Transmission Date: 20141212
  Serious: Yes (Other)
  Sender: FDA-Public Use
  Company Number: CN-CELGENEUS-035-21660-14052796

PATIENT
  Age: 49 Year
  Sex: Female

DRUGS (3)
  1. ABRAXANE [Suspect]
     Indication: BREAST CANCER
     Dosage: 200 MILLIGRAM
     Route: 041
     Dates: start: 201311, end: 201402
  2. EPIRUBICIN [Suspect]
     Indication: BREAST CANCER
     Dosage: 3.5714 MILLIGRAM/SQ. METER
     Route: 065
     Dates: start: 201402, end: 201404
  3. CYCLOPHOSPHAMIDE [Suspect]
     Indication: BREAST CANCER
     Dosage: 600 MILLIGRAM/SQ. METER
     Route: 065
     Dates: start: 201402, end: 201404

REACTIONS (2)
  - Nail bed bleeding [Recovering/Resolving]
  - Extravasation blood [Recovering/Resolving]
